FAERS Safety Report 24203997 (Version 1)
Quarter: 2024Q3

REPORT INFORMATION
  Report Type: Spontaneous
  Country: CN (occurrence: CN)
  Receive Date: 20240813
  Receipt Date: 20240813
  Transmission Date: 20241017
  Serious: Yes (Hospitalization, Other)
  Sender: TAKEDA
  Company Number: CN-HUTCHMED LIMITED-HMP2024CN01819

PATIENT
  Age: 71 Year
  Sex: Female
  Weight: 49 kg

DRUGS (1)
  1. FRUQUINTINIB [Suspect]
     Active Substance: FRUQUINTINIB
     Indication: Gallbladder cancer
     Dosage: 3 MILLIGRAM, QD
     Route: 048
     Dates: start: 20240404, end: 20240405

REACTIONS (2)
  - Haematochezia [Recovering/Resolving]
  - Off label use [Unknown]

NARRATIVE: CASE EVENT DATE: 20240404
